FAERS Safety Report 5263498-5 (Version None)
Quarter: 2007Q1

REPORT INFORMATION
  Report Type: 
  Country: None (occurrence: None)
  Receive Date: 20061213
  Receipt Date: 20041007
  Transmission Date: 20070707
  Serious: Yes (Other)
  Sender: FDA-Public Use
  Company Number: 2004UW21107

PATIENT
  Age: 80 Year
  Sex: Female
  Weight: 53.523 kg

DRUGS (8)
  1. IRESSA [Suspect]
     Indication: NON-SMALL CELL LUNG CANCER
     Dosage: 250 MG PO
     Route: 048
  2. DIOVAN [Concomitant]
  3. NORVASC [Concomitant]
  4. NEXIUM [Concomitant]
  5. ALBUTEROL [Concomitant]
  6. LANOXIN [Concomitant]
  7. ZOCOR [Concomitant]
  8. TOPROL-XL [Concomitant]

REACTIONS (3)
  - ALOPECIA [None]
  - ONYCHOMADESIS [None]
  - PRURITUS [None]
